FAERS Safety Report 11700964 (Version 2)
Quarter: 2015Q4

REPORT INFORMATION
  Report Type: Spontaneous
  Country: US (occurrence: US)
  Receive Date: 20151105
  Receipt Date: 20151105
  Transmission Date: 20160304
  Serious: No
  Sender: FDA-Public Use
  Company Number: US-MISSION PHARMACAL COMPANY-1043772

PATIENT
  Age: 24 Year
  Sex: Female

DRUGS (5)
  1. UROCIT-K [Concomitant]
     Active Substance: POTASSIUM CITRATE
     Route: 065
  2. FENTANYL. [Concomitant]
     Active Substance: FENTANYL
     Route: 065
  3. SEASONIQUE [Concomitant]
     Active Substance: ETHINYL ESTRADIOL\LEVONORGESTREL
     Route: 065
  4. THIOLA [Suspect]
     Active Substance: TIOPRONIN
     Indication: CYSTINURIA
     Route: 065
     Dates: start: 20000801
  5. OXYCODONE HYDROCHLORIDE. [Concomitant]
     Active Substance: OXYCODONE HYDROCHLORIDE
     Route: 065

REACTIONS (9)
  - Eye irritation [Unknown]
  - Throat irritation [Unknown]
  - Burning sensation [Unknown]
  - Pharyngeal haemorrhage [Unknown]
  - Conjunctival haemorrhage [Unknown]
  - Telangiectasia [Unknown]
  - Vomiting [Unknown]
  - Alopecia [Unknown]
  - Constipation [Unknown]
